FAERS Safety Report 13261402 (Version 1)
Quarter: 2017Q1

REPORT INFORMATION
  Report Type: Spontaneous
  Country: US (occurrence: US)
  Receive Date: 20170222
  Receipt Date: 20170222
  Transmission Date: 20170428
  Serious: Yes (Hospitalization)
  Sender: FDA-Public Use
  Company Number: US-LEADIANT BIOSCIENCES INC-2017STPI000086

PATIENT
  Age: 14 Year
  Sex: Female

DRUGS (11)
  1. RANITIDINE. [Concomitant]
     Active Substance: RANITIDINE
  2. POLYETHYLENE GLYCOL [Concomitant]
     Active Substance: POLYETHYLENE GLYCOLS
  3. CYSTARAN [Suspect]
     Active Substance: CYSTEAMINE HYDROCHLORIDE
     Indication: CORNEAL DEPOSITS
     Dosage: 1 GTT, Q2H
     Route: 047
     Dates: start: 20140828
  4. CYPROHEPTADIN [Concomitant]
  5. FOLIC ACID. [Concomitant]
     Active Substance: FOLIC ACID
  6. CARNITOR [Concomitant]
     Active Substance: LEVOCARNITINE
  7. POTASSIUM CHLORIDE. [Concomitant]
     Active Substance: POTASSIUM CHLORIDE
  8. LANSOPRAZOLE. [Concomitant]
     Active Substance: LANSOPRAZOLE
  9. VITAMIN A                          /00056001/ [Concomitant]
     Active Substance: RETINOL
  10. CITRIC ACID [Concomitant]
     Active Substance: CITRIC ACID MONOHYDRATE
  11. PROCYSBI DELAYED-RELEASE [Concomitant]
     Active Substance: CYSTEAMINE BITARTRATE

REACTIONS (2)
  - Renal failure [None]
  - Nephrectomy [None]

NARRATIVE: CASE EVENT DATE: 20170202
